FAERS Safety Report 6249514-2 (Version None)
Quarter: 2009Q2

REPORT INFORMATION
  Report Type: 
  Country: None (occurrence: None)
  Receive Date: 20090629
  Receipt Date: 20090623
  Transmission Date: 20091009
  Serious: Yes (Death, Life-Threatening)
  Sender: FDA-Public Use
  Company Number: B0579941A

PATIENT
  Sex: Female

DRUGS (1)
  1. HYCAMTIN [Suspect]
     Dosage: 7MG PER DAY
     Route: 042
     Dates: start: 20090122, end: 20090602

REACTIONS (5)
  - COMA [None]
  - CONFUSIONAL STATE [None]
  - EPILEPSY [None]
  - GRAND MAL CONVULSION [None]
  - TREMOR [None]
